FAERS Safety Report 4776013-7 (Version None)
Quarter: 2005Q3

REPORT INFORMATION
  Report Type: 
  Country: None (occurrence: None)
  Receive Date: 20050922
  Receipt Date: 20050825
  Transmission Date: 20060218
  Serious: Yes (Hospitalization)
  Sender: FDA-Public Use
  Company Number: JP-ROCHE-415416

PATIENT
  Age: 60 Year
  Sex: Male

DRUGS (12)
  1. PANALDINE [Suspect]
     Indication: THROMBOSIS PROPHYLAXIS
     Dosage: DURATION REPORTED AS 5 WEEKS AND 4 DAYS SECONDARY INDICATION OF STENT PLACEMENT AND ACUTE MYOCARDIA+
     Route: 048
     Dates: start: 20050627, end: 20050804
  2. ASPIRIN [Concomitant]
     Indication: THROMBOSIS PROPHYLAXIS
     Dosage: DURATION WAS REPORTED AS 6 WEEKS AND 4 DAYS
     Route: 048
     Dates: start: 20050627, end: 20050811
  3. UNSPECIFIED DRUG [Concomitant]
     Dosage: DRUG NAME WAS REPORTED AS NOR-ADRENALINE DURATION WAS REPORTED AS 6 WEEKS AND 4 DAYS
     Route: 041
     Dates: start: 20050627, end: 20050811
  4. DOBUTREX [Concomitant]
     Dates: start: 20050627
  5. SIGMART [Concomitant]
     Dates: start: 20050627
  6. HANP [Concomitant]
     Dosage: DURATION WAS REPORTED AS 5 WEEKS AND 2 DAYS
     Route: 041
     Dates: start: 20050706, end: 20050811
  7. TARGOCID [Concomitant]
     Dosage: DURATION REPORTED  AS 1 WEEKS AND 6 DAYS
     Route: 041
     Dates: start: 20050730, end: 20050811
  8. HABEKACIN [Concomitant]
     Dosage: DURATION REPORTED AS 1 WEEK AND 6 DAYS
     Route: 041
     Dates: start: 20050730, end: 20050811
  9. BLOOD, PACKED RED CELLS [Concomitant]
     Dosage: RECEIVED FROM 28 JUNE 2005 TO 1 JUL 2005 (4 DAYS) AND BETWEEN 22 JULY 2005 AND 10 AUG 2005 (2 WEEKS+
     Route: 042
     Dates: start: 20050628, end: 20050810
  10. MEROPENEM [Concomitant]
     Route: 042
     Dates: end: 20050703
  11. LIPITOR [Concomitant]
     Route: 048
     Dates: end: 20050703
  12. TAKEPRON [Concomitant]
     Route: 048
     Dates: end: 20050703

REACTIONS (7)
  - CHOLECYSTITIS [None]
  - DISSEMINATED INTRAVASCULAR COAGULATION [None]
  - HEPATIC FUNCTION ABNORMAL [None]
  - HEPATITIS CHOLESTATIC [None]
  - MULTI-ORGAN FAILURE [None]
  - SEPTIC SHOCK [None]
  - STAPHYLOCOCCAL SEPSIS [None]
